FAERS Safety Report 10415124 (Version 1)
Quarter: 2014Q3

REPORT INFORMATION
  Report Type: Spontaneous
  Country: FR (occurrence: FR)
  Receive Date: 20140828
  Receipt Date: 20140828
  Transmission Date: 20150326
  Serious: Yes (Hospitalization)
  Sender: FDA-Public Use
  Company Number: FR-ASTRAZENECA-2014SE62976

PATIENT
  Age: 15729 Day
  Sex: Male

DRUGS (3)
  1. FLANID [Suspect]
     Active Substance: TIAPROFENIC ACID
     Indication: NASOPHARYNGITIS
     Route: 048
     Dates: start: 20140509, end: 20140514
  2. NASACORT [Suspect]
     Active Substance: TRIAMCINOLONE ACETONIDE
     Indication: NASOPHARYNGITIS
     Route: 045
     Dates: start: 20140509, end: 20140513
  3. ZOMIG [Suspect]
     Active Substance: ZOLMITRIPTAN
     Indication: MIGRAINE
     Route: 048
     Dates: start: 20140513, end: 20140513

REACTIONS (1)
  - Erythema [Recovered/Resolved]

NARRATIVE: CASE EVENT DATE: 20140514
